FAERS Safety Report 21686237 (Version 2)
Quarter: 2022Q4

REPORT INFORMATION
  Report Type: Spontaneous
  Country: IT (occurrence: IT)
  Receive Date: 20221206
  Receipt Date: 20221209
  Transmission Date: 20230113
  Serious: Yes (Other)
  Sender: FDA-Public Use
  Company Number: IT-002147023-NVSC2022IT281562

PATIENT
  Age: 18 Year
  Sex: Female

DRUGS (1)
  1. PAZOPANIB [Suspect]
     Active Substance: PAZOPANIB
     Indication: Product used for unknown indication
     Dosage: 800 MG, QD
     Route: 065
     Dates: start: 20211230, end: 202211

REACTIONS (13)
  - Pulmonary cavitation [Unknown]
  - Metastases to lung [Unknown]
  - Necrosis [Unknown]
  - Axillary mass [Unknown]
  - Bone lesion [Unknown]
  - Nodule [Unknown]
  - Bone disorder [Unknown]
  - Skin fissures [Unknown]
  - Tissue discolouration [Unknown]
  - Nausea [Unknown]
  - Headache [Unknown]
  - Arthralgia [Unknown]
  - Blood creatinine increased [Unknown]

NARRATIVE: CASE EVENT DATE: 20220501
